FAERS Safety Report 14687853 (Version 3)
Quarter: 2018Q2

REPORT INFORMATION
  Report Type: Spontaneous
  Country: BR (occurrence: BR)
  Receive Date: 20180328
  Receipt Date: 20180616
  Transmission Date: 20180711
  Serious: Yes (Other)
  Sender: FDA-Public Use
  Company Number: BR-AMGEN-BRASP2018041445

PATIENT
  Age: 52 Year
  Sex: Female

DRUGS (4)
  1. PREDSIM [Concomitant]
     Active Substance: PREDNISOLONE
     Dosage: 10 MG, DAILY
  2. ENBREL [Suspect]
     Active Substance: ETANERCEPT
     Indication: RHEUMATIC DISORDER
     Dosage: UNK
     Route: 065
     Dates: start: 201711, end: 201802
  3. ENBREL [Suspect]
     Active Substance: ETANERCEPT
     Dosage: UNK
     Route: 065
  4. TECNOMET [Concomitant]
     Active Substance: METHOTREXATE
     Dosage: 30 MG, WEEKLY

REACTIONS (11)
  - Joint effusion [Not Recovered/Not Resolved]
  - Urethritis noninfective [Unknown]
  - Joint injury [Not Recovered/Not Resolved]
  - Urethritis [Unknown]
  - Impaired work ability [Unknown]
  - Renal injury [Unknown]
  - Decreased immune responsiveness [Unknown]
  - Pain in extremity [Unknown]
  - Nephritis [Unknown]
  - Renal colic [Unknown]
  - Bone disorder [Unknown]
